FAERS Safety Report 19627567 (Version 1)
Quarter: 2021Q3

REPORT INFORMATION
  Report Type: Other
  Country: IN (occurrence: IN)
  Receive Date: 20210729
  Receipt Date: 20210729
  Transmission Date: 20211014
  Serious: Yes (Other)
  Sender: FDA-Public Use
  Company Number: IN-ROCHE-2879719

PATIENT
  Age: 62 Year
  Sex: Male

DRUGS (1)
  1. BEVACIZUMAB. [Suspect]
     Active Substance: BEVACIZUMAB
     Indication: EYE DISORDER
     Route: 050

REACTIONS (3)
  - Suspected transmission of an infectious agent via product [Unknown]
  - Off label use [Unknown]
  - Endophthalmitis [Unknown]
